FAERS Safety Report 10489178 (Version 1)
Quarter: 2014Q3

REPORT INFORMATION
  Report Type: Spontaneous
  Country: US (occurrence: None)
  Receive Date: 20140815
  Receipt Date: 20140815
  Transmission Date: 20150326
  Serious: Yes (Other)
  Sender: FDA-Public Use
  Company Number: ADR-2013-00412

PATIENT
  Sex: Female

DRUGS (10)
  1. HYDROCODONE [Suspect]
     Active Substance: HYDROCODONE
     Route: 048
  2. OMEGA 3 [Suspect]
     Active Substance: OMEGA-3 FATTY ACIDS
     Route: 048
  3. POTASSIUM [Suspect]
     Active Substance: POTASSIUM
     Route: 048
  4. BACLOFEN INTRATHECAL [Suspect]
     Active Substance: BACLOFEN
     Indication: PAIN
     Route: 048
  5. LASIX [Suspect]
     Active Substance: FUROSEMIDE
     Route: 048
  6. DILOF [Suspect]
     Active Substance: UNSPECIFIED INGREDIENT
     Route: 048
  7. DILAUDID [Suspect]
     Active Substance: HYDROMORPHONE HYDROCHLORIDE
     Dates: start: 20121205
  8. CALCIUM [Suspect]
     Active Substance: CALCIUM
     Route: 048
  9. MORPHINE INTRATHECAL [Suspect]
     Active Substance: MORPHINE
  10. IRON [Suspect]
     Active Substance: IRON
     Route: 048

REACTIONS (6)
  - Erythema [None]
  - Implant site swelling [None]
  - Back pain [None]
  - Headache [None]
  - Nausea [None]
  - Oedema peripheral [None]
